FAERS Safety Report 9118364 (Version 1)
Quarter: 2013Q1

REPORT INFORMATION
  Report Type: Spontaneous
  Country: US (occurrence: None)
  Receive Date: 20130221
  Receipt Date: 20130221
  Transmission Date: 20140127
  Serious: Yes (Other)
  Sender: FDA-Public Use
  Company Number: None

PATIENT
  Age: 69 None
  Sex: Male
  Weight: 95 kg

DRUGS (2)
  1. CEFTAZIDIME [Suspect]
     Indication: PYREXIA
     Route: 042
     Dates: start: 20121215, end: 20121216
  2. CEFTAZIDIME [Suspect]
     Indication: BACTERAEMIA
     Route: 042
     Dates: start: 20121215, end: 20121216

REACTIONS (5)
  - Flushing [None]
  - Erythema [None]
  - Rash erythematous [None]
  - Pruritus [None]
  - Infusion related reaction [None]
